FAERS Safety Report 8477691-1 (Version None)
Quarter: 2012Q2

REPORT INFORMATION
  Report Type: 
  Country: None (occurrence: None)
  Receive Date: 20120626
  Receipt Date: 20120626
  Transmission Date: 20120825
  Serious: No
  Sender: FDA-Public Use
  Company Number: None

PATIENT
  Age: 65 Year
  Sex: Male
  Weight: 86.7 kg

DRUGS (1)
  1. CEPHALEXIN [Suspect]
     Indication: THROMBOPHLEBITIS
     Dosage: 500 MG QID PO
     Route: 048
     Dates: start: 20111015, end: 20111018

REACTIONS (3)
  - URTICARIA [None]
  - RASH MACULO-PAPULAR [None]
  - ACUTE MYOCARDIAL INFARCTION [None]
